FAERS Safety Report 8917236 (Version 1)
Quarter: 2012Q4

REPORT INFORMATION
  Report Type: 
  Country: DE (occurrence: DE)
  Receive Date: 20121119
  Receipt Date: 20121119
  Transmission Date: 20130627
  Serious: Yes (Hospitalization)
  Sender: FDA-Public Use
  Company Number: DE-MYLANLABS-2012S1023211

PATIENT
  Age: 71 Year
  Sex: Female

DRUGS (2)
  1. CITALOPRAM [Suspect]
     Indication: MAJOR DEPRESSION
     Dosage: 20mg
     Route: 065
  2. FORMOTEROL W/BUDESONIDE [Concomitant]
     Indication: BRONCHITIS CHRONIC
     Route: 055

REACTIONS (1)
  - Cutaneous lupus erythematosus [Recovered/Resolved]
